FAERS Safety Report 10953502 (Version 1)
Quarter: 2015Q1

REPORT INFORMATION
  Report Type: Spontaneous
  Country: US (occurrence: None)
  Receive Date: 20150226
  Receipt Date: 20150226
  Transmission Date: 20150721
  Serious: No
  Sender: FDA-Public Use
  Company Number: TPA2010A04364

PATIENT
  Age: 69 Year
  Sex: Male
  Weight: 79.38 kg

DRUGS (7)
  1. ATENOLOL. [Concomitant]
     Active Substance: ATENOLOL
  2. AMBIEN [Concomitant]
     Active Substance: ZOLPIDEM TARTRATE
  3. ULORIC [Suspect]
     Active Substance: FEBUXOSTAT
     Indication: PERIPHERAL SWELLING
     Dosage: 1 IN 1 D
     Route: 048
     Dates: start: 20100712
  4. HALCION (TRIAZOLAM) [Concomitant]
  5. OMEPRAZOLE. [Concomitant]
     Active Substance: OMEPRAZOLE
  6. ULORIC [Suspect]
     Active Substance: FEBUXOSTAT
     Indication: LOCAL SWELLING
     Dosage: 1 IN 1 D
     Route: 048
     Dates: start: 20100712
  7. XANAX [Concomitant]
     Active Substance: ALPRAZOLAM

REACTIONS (3)
  - Acne [None]
  - Pain in extremity [None]
  - Acrochordon [None]

NARRATIVE: CASE EVENT DATE: 2010
